FAERS Safety Report 23580281 (Version 1)
Quarter: 2024Q1

REPORT INFORMATION
  Report Type: Report from Study
  Country: DE (occurrence: DE)
  Receive Date: 20240229
  Receipt Date: 20240229
  Transmission Date: 20240410
  Serious: Yes (Other)
  Sender: FDA-Public Use
  Company Number: DE-BAYER-2024A006574

PATIENT
  Age: 55 Year
  Sex: Female

DRUGS (1)
  1. VENTAVIS [Suspect]
     Active Substance: ILOPROST
     Indication: Pulmonary arterial hypertension
     Dosage: V10
     Route: 055
     Dates: start: 20240112

REACTIONS (7)
  - Respiratory distress [Recovering/Resolving]
  - Neuralgia [Recovered/Resolved]
  - Fatigue [Recovered/Resolved]
  - Neuralgia [Recovering/Resolving]
  - Dry mouth [Recovering/Resolving]
  - Cough [Not Recovered/Not Resolved]
  - Chest pain [Recovering/Resolving]

NARRATIVE: CASE EVENT DATE: 20240112
